FAERS Safety Report 10695769 (Version 1)
Quarter: 2015Q1

REPORT INFORMATION
  Report Type: Spontaneous
  Country: IT (occurrence: IT)
  Receive Date: 20150107
  Receipt Date: 20150107
  Transmission Date: 20150721
  Serious: Yes (Death, Other)
  Sender: FDA-Public Use
  Company Number: IT-CELGENE-083-20785-14080382

PATIENT
  Age: 67 Year
  Sex: Male

DRUGS (10)
  1. MELPHALAN [Concomitant]
     Active Substance: MELPHALAN
     Route: 065
  2. BORTEZOMIB [Concomitant]
     Active Substance: BORTEZOMIB
     Indication: AMYLOIDOSIS
     Route: 065
     Dates: start: 200810
  3. BORTEZOMIB [Concomitant]
     Active Substance: BORTEZOMIB
     Route: 041
  4. DEXAMETHASONE. [Concomitant]
     Active Substance: DEXAMETHASONE
     Indication: AMYLOIDOSIS
     Route: 048
     Dates: start: 200507, end: 200512
  5. MELPHALAN [Concomitant]
     Active Substance: MELPHALAN
     Indication: AMYLOIDOSIS
     Route: 065
     Dates: start: 200502
  6. THALIDOMIDE [Suspect]
     Active Substance: THALIDOMIDE
     Indication: AMYLOIDOSIS
     Route: 048
     Dates: start: 200509, end: 200601
  7. PREDNISONE. [Concomitant]
     Active Substance: PREDNISONE
     Indication: AMYLOIDOSIS
     Route: 065
     Dates: start: 200502
  8. DEXAMETHASONE. [Concomitant]
     Active Substance: DEXAMETHASONE
     Route: 048
  9. THALIDOMIDE [Suspect]
     Active Substance: THALIDOMIDE
     Route: 048
     Dates: start: 200605
  10. DEXAMETHASONE. [Concomitant]
     Active Substance: DEXAMETHASONE
     Route: 048
     Dates: start: 200810

REACTIONS (7)
  - Polyneuropathy [Unknown]
  - Lactic acidosis [Fatal]
  - Interstitial lung disease [Fatal]
  - Lung infection [Unknown]
  - Hypotension [Fatal]
  - Herpes zoster [Unknown]
  - Amyloidosis [Unknown]
